FAERS Safety Report 7481186-1 (Version None)
Quarter: 2011Q2

REPORT INFORMATION
  Report Type: 
  Country: None (occurrence: None)
  Receive Date: 20110516
  Receipt Date: 20110502
  Transmission Date: 20111010
  Serious: Yes (Other)
  Sender: FDA-Public Use
  Company Number: US-GENENTECH-318824

PATIENT
  Age: 78 Year
  Sex: Female

DRUGS (1)
  1. RITUXAN [Suspect]
     Indication: COLD TYPE HAEMOLYTIC ANAEMIA
     Route: 042

REACTIONS (2)
  - NEUTROPENIA [None]
  - SPLENECTOMY [None]
